FAERS Safety Report 6640675-X (Version None)
Quarter: 2010Q1

REPORT INFORMATION
  Report Type: 
  Country: None (occurrence: None)
  Receive Date: 20100318
  Receipt Date: 20100308
  Transmission Date: 20100710
  Serious: Yes (Other)
  Sender: FDA-Public Use
  Company Number: HR-WYE-H14040910

PATIENT
  Age: 78 Year
  Sex: Female

DRUGS (2)
  1. CONTROLOC [Suspect]
     Dosage: 40 MG, FREQUENCY UNKNOWN
     Dates: start: 20100101
  2. FERRIC HYDROXIDE POLYMALTOSE COMPLEX [Concomitant]
     Dosage: 100 MG, UNSPECIFIED FREQUENCY
     Route: 048
     Dates: start: 20100101

REACTIONS (2)
  - EROSIVE OESOPHAGITIS [None]
  - ORAL DISORDER [None]
